FAERS Safety Report 24384399 (Version 2)
Quarter: 2025Q3

REPORT INFORMATION
  Report Type: Report from Study
  Country: TR (occurrence: TR)
  Receive Date: 20241001
  Receipt Date: 20250809
  Transmission Date: 20251021
  Serious: Yes (Hospitalization)
  Sender: ALEXION PHARMACEUTICALS
  Company Number: TR-ALXN-202407TUR000205TR

PATIENT
  Sex: Male
  Weight: 18 kg

DRUGS (1)
  1. SOLIRIS [Suspect]
     Active Substance: ECULIZUMAB
     Indication: Atypical haemolytic uraemic syndrome
     Dosage: 300 MILLIGRAM, Q2W
     Dates: start: 20200722

REACTIONS (4)
  - Dyspnoea [Unknown]
  - Infection [Not Recovered/Not Resolved]
  - Renal disorder [Unknown]
  - Pyrexia [Unknown]
